FAERS Safety Report 7075056-0 (Version None)
Quarter: 2010Q4

REPORT INFORMATION
  Report Type: 
  Country: None (occurrence: None)
  Receive Date: 20101029
  Receipt Date: 20100128
  Transmission Date: 20110411
  Serious: No
  Sender: FDA-Public Use
  Company Number: US-WYE-H13111810

PATIENT
  Age: 37 Year
  Sex: Male
  Weight: 68.1 kg

DRUGS (1)
  1. ADVIL PM [Suspect]
     Indication: BACK PAIN
     Dosage: 2 CAPLETS X 1
     Route: 048
     Dates: start: 20100119, end: 20100119

REACTIONS (1)
  - DRUG INEFFECTIVE [None]
